FAERS Safety Report 21017576 (Version 1)
Quarter: 2022Q2

REPORT INFORMATION
  Report Type: Spontaneous
  Country: US (occurrence: None)
  Receive Date: 20220627
  Receipt Date: 20220627
  Transmission Date: 20220721
  Serious: Yes (Other)
  Sender: FDA-Public Use
  Company Number: None

PATIENT
  Age: 30 Year
  Sex: Female

DRUGS (1)
  1. KYLEENA [Suspect]
     Active Substance: LEVONORGESTREL
     Indication: Contraception
     Route: 067
     Dates: start: 20190424, end: 20220616

REACTIONS (5)
  - Impaired gastric emptying [None]
  - Abdominal distension [None]
  - Nausea [None]
  - Abdominal pain [None]
  - Impaired gastric emptying [None]

NARRATIVE: CASE EVENT DATE: 20190901
